FAERS Safety Report 4709577-X (Version None)
Quarter: 2005Q3

REPORT INFORMATION
  Report Type: 
  Country: None (occurrence: None)
  Receive Date: 20050706
  Receipt Date: 20050623
  Transmission Date: 20060218
  Serious: Yes (Other)
  Sender: FDA-Public Use
  Company Number: 2005064137

PATIENT
  Age: 72 Year
  Sex: Male
  Weight: 88 kg

DRUGS (6)
  1. CAMPTOSAR [Suspect]
     Indication: COLON CANCER METASTATIC
     Dosage: 160 MG
     Dates: start: 20050214, end: 20050517
  2. OXALIPLATIN        (OXALIPLATIN) [Suspect]
     Indication: COLON CANCER METASTATIC
     Dosage: 2.4 MG
     Dates: start: 20021218, end: 20040818
  3. FLUOROURACIL [Concomitant]
  4. SODIUM FOLINIC ACID                      (SODIUM FOLINIC ACID) [Concomitant]
  5. ALLOPURINOL [Concomitant]
  6. METOHEXAL COMP [Concomitant]

REACTIONS (3)
  - CONDITION AGGRAVATED [None]
  - NEUROPATHY PERIPHERAL [None]
  - PARAESTHESIA [None]
